FAERS Safety Report 9516573 (Version 3)
Quarter: 2013Q4

REPORT INFORMATION
  Report Type: Spontaneous
  Country: IL (occurrence: IL)
  Receive Date: 20130911
  Receipt Date: 20131205
  Transmission Date: 20140711
  Serious: Yes (Death)
  Sender: FDA-Public Use
  Company Number: IL-CELGENEUS-082-C4047-13091314

PATIENT
  Age: 65 Year
  Sex: Male
  Weight: 61 kg

DRUGS (5)
  1. POMALYST [Suspect]
     Indication: PLASMA CELL MYELOMA
     Dosage: 4 MILLIGRAM
     Route: 048
     Dates: start: 20130901, end: 20130905
  2. DEXAMETHASONE [Concomitant]
     Indication: PLASMA CELL MYELOMA
     Dosage: 2.8571 MILLIGRAM
     Route: 065
     Dates: start: 20080302, end: 20130905
  3. ARANESP [Concomitant]
     Indication: ANAEMIA
     Dosage: 300 MICROGRAM
     Route: 050
     Dates: start: 20130526, end: 20130829
  4. GAMMAGLOBULIN [Concomitant]
     Indication: HYPOGAMMAGLOBULINAEMIA
     Dosage: 20 GRAM
     Route: 041
     Dates: start: 20130526, end: 20130829
  5. RESPRIM FORTE [Concomitant]
     Indication: PROPHYLAXIS
     Dosage: 2 DOSAGE FORMS
     Route: 065
     Dates: start: 20040314, end: 20130905

REACTIONS (1)
  - Cardio-respiratory arrest [Fatal]
